FAERS Safety Report 11254557 (Version 1)
Quarter: 2015Q3

REPORT INFORMATION
  Report Type: Spontaneous
  Country: US (occurrence: None)
  Receive Date: 20150708
  Receipt Date: 20150708
  Transmission Date: 20151125
  Serious: Yes (Other)
  Sender: FDA-Public Use
  Company Number: None

PATIENT
  Age: 24 Year
  Sex: Female
  Weight: 54.43 kg

DRUGS (6)
  1. FLUOXETINE [Concomitant]
     Active Substance: FLUOXETINE\FLUOXETINE HYDROCHLORIDE
  2. IBUPROFEN. [Concomitant]
     Active Substance: IBUPROFEN
  3. APRI BIRTH CONTROL [Concomitant]
  4. METRONIDAZOLE 250MG [Suspect]
     Active Substance: METRONIDAZOLE
     Indication: ANTIBIOTIC PROPHYLAXIS
     Dosage: 1 TABLET
     Route: 048
     Dates: start: 20150701, end: 20150705
  5. TYLENOL [Concomitant]
     Active Substance: ACETAMINOPHEN
  6. AMOXICILILN [Concomitant]

REACTIONS (6)
  - Paranoia [None]
  - Hyperhidrosis [None]
  - Pain [None]
  - Vomiting [None]
  - Chest discomfort [None]
  - Anxiety [None]

NARRATIVE: CASE EVENT DATE: 20150704
